FAERS Safety Report 7989205-0 (Version None)
Quarter: 2011Q4

REPORT INFORMATION
  Report Type: 
  Country: None (occurrence: None)
  Receive Date: 20111007
  Receipt Date: 20110720
  Transmission Date: 20120403
  Serious: No
  Sender: FDA-Public Use
  Company Number: 2011HGS-002409

PATIENT
  Age: 27 Year
  Sex: Female
  Weight: 54.8852 kg

DRUGS (3)
  1. BENLYSTA [Suspect]
     Indication: SYSTEMIC LUPUS ERYTHEMATOSUS
     Dosage: 500 MG, 1 IN 14 D, INTRAVENOUS DRIP, 500 MG, 1 IN 14 D, INTRAVENOUS DRIP
     Route: 041
     Dates: start: 20110615, end: 20110615
  2. BENLYSTA [Suspect]
     Indication: SYSTEMIC LUPUS ERYTHEMATOSUS
     Dosage: 500 MG, 1 IN 14 D, INTRAVENOUS DRIP, 500 MG, 1 IN 14 D, INTRAVENOUS DRIP
     Route: 041
     Dates: start: 20110630, end: 20110630
  3. CELLCEPT (MYCOPHENOLATE MOFETIL) (MYCOPHENOLATE MOFETIL) [Concomitant]

REACTIONS (5)
  - PROCTALGIA [None]
  - CONSTIPATION [None]
  - URINARY RETENTION [None]
  - NERVE INJURY [None]
  - URINARY TRACT INFECTION [None]
